FAERS Safety Report 6152429-1 (Version None)
Quarter: 2009Q2

REPORT INFORMATION
  Report Type: 
  Country: None (occurrence: None)
  Receive Date: 20090413
  Receipt Date: 20090407
  Transmission Date: 20091009
  Serious: Yes (Other)
  Sender: FDA-Public Use
  Company Number: US-ASTRAZENECA-2009UW08697

PATIENT
  Age: 49 Year
  Sex: Female
  Weight: 72.6 kg

DRUGS (5)
  1. CRESTOR [Suspect]
     Route: 048
  2. CRESTOR [Suspect]
     Route: 048
  3. LEVOXYL [Concomitant]
     Indication: HYPOTHYROIDISM
  4. HYZAAR [Concomitant]
     Indication: HYPERTENSION
  5. NEXIUM [Concomitant]
     Indication: GASTROOESOPHAGEAL REFLUX DISEASE
     Route: 048

REACTIONS (2)
  - HEPATIC STEATOSIS [None]
  - MYALGIA [None]
